FAERS Safety Report 18105263 (Version 9)
Quarter: 2022Q3

REPORT INFORMATION
  Report Type: Report from Study
  Country: GB (occurrence: GB)
  Receive Date: 20200803
  Receipt Date: 20220721
  Transmission Date: 20221026
  Serious: Yes (Hospitalization, Other)
  Sender: FDA-Public Use
  Company Number: GB-ROCHE-2640382

PATIENT
  Age: 47 Year
  Sex: Female

DRUGS (10)
  1. CAPECITABINE [Suspect]
     Active Substance: CAPECITABINE
     Indication: Breast cancer metastatic
     Dosage: 1450 MILLIGRAM
     Route: 048
     Dates: start: 20190411
  2. TRASTUZUMAB [Suspect]
     Active Substance: TRASTUZUMAB
     Indication: Breast cancer metastatic
     Dosage: 160 MILLIGRAM, Q3W
     Route: 042
     Dates: start: 20180828, end: 201902
  3. TRASTUZUMAB [Suspect]
     Active Substance: TRASTUZUMAB
     Dosage: 315 MILLIGRAM, 3XW
     Route: 042
     Dates: start: 20171121, end: 20180711
  4. TRASTUZUMAB [Suspect]
     Active Substance: TRASTUZUMAB
     Dosage: 357 MILLIGRAM, 3XW
     Route: 042
     Dates: start: 20190411
  5. DOCETAXEL [Suspect]
     Active Substance: DOCETAXEL
     Indication: Breast cancer metastatic
     Dosage: 90 MILLIGRAM, Q3W (6 CYCLES PER REGIMEN)
     Route: 042
     Dates: start: 20171121, end: 20180302
  6. DOCETAXEL [Suspect]
     Active Substance: DOCETAXEL
     Dosage: 90 MILLIGRAM, Q3W (6 CYCLES PER REGIMEN)
     Route: 042
     Dates: start: 20171121, end: 20180711
  7. TAXOTERE [Suspect]
     Active Substance: DOCETAXEL
     Indication: Breast cancer metastatic
     Dosage: 90 MILLIGRAM, Q3W
     Route: 042
     Dates: start: 20171121, end: 20180302
  8. PERTUZUMAB [Suspect]
     Active Substance: PERTUZUMAB
     Indication: Breast cancer metastatic
     Dosage: 420 MILLIGRAM, Q3W
     Route: 042
     Dates: start: 20171121, end: 20180711
  9. ADO-TRASTUZUMAB EMTANSINE [Suspect]
     Active Substance: ADO-TRASTUZUMAB EMTANSINE
     Indication: Breast cancer metastatic
     Dosage: 160 MILLIGRAM, Q3W
     Route: 042
     Dates: start: 20180828, end: 201902
  10. CAPECITABINE [Suspect]
     Active Substance: CAPECITABINE
     Indication: Breast cancer metastatic
     Dosage: 1450 MILLIGRAM
     Route: 042
     Dates: start: 20190411

REACTIONS (2)
  - Pneumonia aspiration [Recovered/Resolved]
  - Off label use [Unknown]

NARRATIVE: CASE EVENT DATE: 20200101
